FAERS Safety Report 6818369-7 (Version None)
Quarter: 2010Q3

REPORT INFORMATION
  Report Type: 
  Country: None (occurrence: None)
  Receive Date: 20100706
  Receipt Date: 20080208
  Transmission Date: 20110219
  Serious: Yes (Hospitalization)
  Sender: FDA-Public Use
  Company Number: US-PFIZER INC-2008012700

PATIENT
  Age: 17 Month
  Sex: Male

DRUGS (2)
  1. AZITHROMYCIN [Suspect]
     Indication: OTITIS MEDIA
     Dosage: ONCE
     Dates: start: 20071130, end: 20071130
  2. IBUPROFEN [Concomitant]

REACTIONS (2)
  - ANAPHYLACTIC REACTION [None]
  - URTICARIA [None]
